FAERS Safety Report 15436131 (Version 1)
Quarter: 2018Q3

REPORT INFORMATION
  Report Type: Spontaneous
  Country: KR (occurrence: KR)
  Receive Date: 20180927
  Receipt Date: 20180927
  Transmission Date: 20181010
  Serious: Yes (Death, Other)
  Sender: FDA-Public Use
  Company Number: KR-009507513-1809KOR010036

PATIENT
  Sex: Female

DRUGS (4)
  1. ANTI KALIUM NA [Concomitant]
     Dosage: UNK
     Dates: start: 20180731, end: 20180903
  2. KEYTRUDA [Suspect]
     Active Substance: PEMBROLIZUMAB
     Indication: OVARIAN CANCER
     Dosage: UNK
     Dates: start: 20180907, end: 20180907
  3. ULCERMIN [Concomitant]
     Active Substance: SUCRALFATE
     Dosage: UNK
     Dates: start: 20180716, end: 20180908
  4. ATIVAN [Concomitant]
     Active Substance: LORAZEPAM
     Dosage: UNK
     Dates: start: 20180817, end: 20180914

REACTIONS (2)
  - Product use in unapproved indication [Unknown]
  - Multiple organ dysfunction syndrome [Fatal]

NARRATIVE: CASE EVENT DATE: 20180916
